FAERS Safety Report 5786186-5 (Version None)
Quarter: 2008Q2

REPORT INFORMATION
  Report Type: 
  Country: None (occurrence: None)
  Receive Date: 20080624
  Receipt Date: 20080611
  Transmission Date: 20081010
  Serious: Yes (Hospitalization)
  Sender: FDA-Public Use
  Company Number: B0514191A

PATIENT
  Age: 41 Year
  Sex: Male
  Weight: 50 kg

DRUGS (7)
  1. RETROVIR [Suspect]
     Indication: HIV INFECTION
     Dosage: 2TAB PER DAY
     Route: 048
     Dates: start: 19960229, end: 19960411
  2. COMBIVIR [Suspect]
     Indication: HIV INFECTION
     Dosage: 2TAB PER DAY
     Route: 048
     Dates: start: 20040416, end: 20051215
  3. KIVEXA [Suspect]
     Indication: HIV INFECTION
     Route: 048
     Dates: start: 20060301
  4. TRUVADA [Suspect]
     Indication: HIV INFECTION
     Dosage: 1TAB PER DAY
     Route: 048
     Dates: start: 20070920, end: 20080301
  5. TIPRANAVIR [Concomitant]
     Indication: HIV INFECTION
     Route: 048
     Dates: start: 20060301
  6. KALETRA [Concomitant]
     Indication: HIV INFECTION
     Route: 048
     Dates: start: 20070920, end: 20080301
  7. BACTRIM [Concomitant]
     Dosage: 1TAB PER DAY
     Route: 048

REACTIONS (48)
  - ALANINE AMINOTRANSFERASE INCREASED [None]
  - ANOGENITAL DYSPLASIA [None]
  - ANOGENITAL WARTS [None]
  - ARTHRALGIA [None]
  - ARTHRITIS [None]
  - ARTHRITIS INFECTIVE [None]
  - ASPARTATE AMINOTRANSFERASE INCREASED [None]
  - C-REACTIVE PROTEIN INCREASED [None]
  - CARDIAC FAILURE [None]
  - CHOLESTASIS [None]
  - CONGESTIVE CARDIOMYOPATHY [None]
  - DIARRHOEA [None]
  - DILATATION INTRAHEPATIC DUCT ACQUIRED [None]
  - DILATATION VENTRICULAR [None]
  - DYSPLASIA [None]
  - DYSPNOEA [None]
  - DYSPNOEA PAROXYSMAL NOCTURNAL [None]
  - EJECTION FRACTION DECREASED [None]
  - ELECTROCARDIOGRAM QT PROLONGED [None]
  - ELECTROCARDIOGRAM ST SEGMENT ABNORMAL [None]
  - ELECTROCARDIOGRAM T WAVE INVERSION [None]
  - FATIGUE [None]
  - GAMMA-GLUTAMYLTRANSFERASE INCREASED [None]
  - HEPATOCELLULAR INJURY [None]
  - HEPATOJUGULAR REFLUX [None]
  - HILAR LYMPHADENOPATHY [None]
  - HYPOPHOSPHATAEMIA [None]
  - INFLAMMATION [None]
  - JAUNDICE [None]
  - JOINT SWELLING [None]
  - LEFT VENTRICULAR HYPERTROPHY [None]
  - LICHENIFICATION [None]
  - LYMPHOCYTE COUNT DECREASED [None]
  - MITRAL VALVE INCOMPETENCE [None]
  - MYOPERICARDITIS [None]
  - OEDEMA PERIPHERAL [None]
  - PAPILLOMA [None]
  - PERICARDIAL EFFUSION [None]
  - PITTING OEDEMA [None]
  - PROCTITIS [None]
  - PYREXIA [None]
  - QRS AXIS ABNORMAL [None]
  - STAPHYLOCOCCAL INFECTION [None]
  - T-LYMPHOCYTE COUNT DECREASED [None]
  - TREATMENT NONCOMPLIANCE [None]
  - VENTRICULAR DYSFUNCTION [None]
  - VENTRICULAR HYPOKINESIA [None]
  - WEIGHT INCREASED [None]
